FAERS Safety Report 11745880 (Version 20)
Quarter: 2019Q2

REPORT INFORMATION
  Report Type: Spontaneous
  Country: US (occurrence: US)
  Receive Date: 20151117
  Receipt Date: 20190619
  Transmission Date: 20190711
  Serious: Yes (Congenital Anomaly, Other)
  Sender: FDA-Public Use
  Company Number: PHEH2015US023698

PATIENT
  Sex: Female

DRUGS (2)
  1. ONDANSETRON HYDROCHLORIDE. [Suspect]
     Active Substance: ONDANSETRON HYDROCHLORIDE
     Indication: FOETAL EXPOSURE DURING PREGNANCY
     Dosage: MOTHER DOSE: 1 DF (Q6H)
     Route: 064
  2. ZOFRAN [Suspect]
     Active Substance: ONDANSETRON HYDROCHLORIDE
     Indication: FOETAL EXPOSURE DURING PREGNANCY
     Route: 064

REACTIONS (49)
  - Congenital anomaly [Unknown]
  - Weight decreased [Unknown]
  - Impetigo [Unknown]
  - Acute sinusitis [Unknown]
  - Urticaria [Unknown]
  - Decreased appetite [Unknown]
  - Upper respiratory tract infection [Unknown]
  - Jaundice neonatal [Unknown]
  - Sneezing [Unknown]
  - Otitis media chronic [Unknown]
  - Pyrexia [Unknown]
  - Urinary tract infection [Unknown]
  - Nasopharyngitis [Unknown]
  - Cough [Unknown]
  - Hypermetropia [Unknown]
  - Vaginal infection [Unknown]
  - Oropharyngeal pain [Unknown]
  - Fall [Unknown]
  - Anhedonia [Unknown]
  - Constipation [Unknown]
  - Otitis media acute [Unknown]
  - Vision blurred [Unknown]
  - Cleft palate [Unknown]
  - Speech disorder developmental [Unknown]
  - Nasal congestion [Unknown]
  - Dermatitis diaper [Unknown]
  - Myopia [Unknown]
  - Lip swelling [Unknown]
  - Toothache [Unknown]
  - Croup infectious [Unknown]
  - Injury [Unknown]
  - Emotional distress [Unknown]
  - Dysuria [Unknown]
  - Rhinorrhoea [Unknown]
  - Bronchitis [Unknown]
  - Cystitis [Unknown]
  - Rhinitis allergic [Unknown]
  - Anxiety [Unknown]
  - Ear pain [Unknown]
  - Oral pain [Unknown]
  - Headache [Unknown]
  - Foetal exposure during pregnancy [Unknown]
  - Adenoiditis [Unknown]
  - Respiratory disorder neonatal [Unknown]
  - Dysphonia [Unknown]
  - Wheezing [Unknown]
  - Pain [Unknown]
  - Ear infection [Unknown]
  - Chronic sinusitis [Unknown]
